FAERS Safety Report 6682761-4 (Version None)
Quarter: 2010Q2

REPORT INFORMATION
  Report Type: 
  Country: None (occurrence: None)
  Receive Date: 20100415
  Receipt Date: 20100324
  Transmission Date: 20101027
  Serious: Yes (Hospitalization)
  Sender: FDA-Public Use
  Company Number: US-ROCHE-694716

PATIENT
  Sex: Female
  Weight: 61.8 kg

DRUGS (13)
  1. BEVACIZUMAB [Suspect]
     Route: 042
     Dates: start: 20091130
  2. BLINDED PEGFILGRASTIM [Suspect]
     Indication: CHEMOTHERAPY
     Dosage: LAST DOSE PRIOR TO THE EVENT: 31 DECEMBER 2009
     Route: 058
     Dates: start: 20091203
  3. FOLINIC ACID [Concomitant]
     Route: 042
     Dates: start: 20091130
  4. IRINOTECAN HYDROCHLORIDE [Concomitant]
     Route: 042
     Dates: start: 20091130
  5. IRINOTECAN HYDROCHLORIDE [Concomitant]
     Route: 042
  6. FLUOROURACIL [Concomitant]
     Route: 042
     Dates: start: 20091130
  7. PHENERGAN [Concomitant]
     Route: 048
  8. ATIVAN [Concomitant]
     Route: 048
  9. SYNTHROID [Concomitant]
     Route: 048
  10. LOPRESSOR [Concomitant]
     Route: 048
  11. MICRO-K [Concomitant]
     Route: 048
  12. SIMVASTATIN [Concomitant]
  13. IMODIUM [Concomitant]

REACTIONS (6)
  - DEHYDRATION [None]
  - DIARRHOEA [None]
  - HYPOKALAEMIA [None]
  - LEUKOCYTOSIS [None]
  - NAUSEA [None]
  - VOMITING [None]
